FAERS Safety Report 14504660 (Version 2)
Quarter: 2018Q1

REPORT INFORMATION
  Report Type: Report from Study
  Country: BR (occurrence: BR)
  Receive Date: 20180208
  Receipt Date: 20180307
  Transmission Date: 20180509
  Serious: Yes (Other)
  Sender: FDA-Public Use
  Company Number: BR-BAYER-2017-245814

PATIENT
  Age: 79 Year
  Sex: Male

DRUGS (9)
  1. ANCORON [Concomitant]
     Active Substance: AMIODARONE HYDROCHLORIDE
     Indication: CARDIAC DISORDER
     Dosage: UNK
  2. FUROSEMIDE. [Concomitant]
     Active Substance: FUROSEMIDE
     Indication: HYPERTENSION
     Dosage: UNK
  3. NATRIX [Concomitant]
     Active Substance: INDAPAMIDE
     Indication: BLOOD PRESSURE ABNORMAL
  4. NEXAVAR [Suspect]
     Active Substance: SORAFENIB
     Indication: HEPATOCELLULAR CARCINOMA
     Dosage: 800 MG, QD
     Route: 048
     Dates: start: 20171212, end: 20180108
  5. NEXAVAR [Suspect]
     Active Substance: SORAFENIB
     Indication: HEPATOCELLULAR CARCINOMA
     Dosage: DAILY DOSE 400 MG
     Route: 048
     Dates: start: 20180123
  6. PRADAXA [Concomitant]
     Active Substance: DABIGATRAN ETEXILATE MESYLATE
     Indication: CARDIOVASCULAR DISORDER
  7. GLUCOSAMINE SULFATE [Concomitant]
     Active Substance: GLUCOSAMINE SULFATE
     Indication: BONE DISORDER
     Dosage: 1 SACHET
  8. ANCORON [Concomitant]
     Active Substance: AMIODARONE HYDROCHLORIDE
     Indication: BLOOD PRESSURE ABNORMAL
  9. NATRIX [Concomitant]
     Active Substance: INDAPAMIDE
     Indication: CARDIAC DISORDER
     Dosage: UNK

REACTIONS (5)
  - Rash morbilliform [Not Recovered/Not Resolved]
  - Dysphonia [Not Recovered/Not Resolved]
  - Laboratory test abnormal [Not Recovered/Not Resolved]
  - Drug-induced liver injury [Not Recovered/Not Resolved]
  - Toxicity to various agents [None]

NARRATIVE: CASE EVENT DATE: 201712
